FAERS Safety Report 8535622-X (Version None)
Quarter: 2012Q3

REPORT INFORMATION
  Report Type: 
  Country: None (occurrence: None)
  Receive Date: 20120725
  Receipt Date: 20120720
  Transmission Date: 20120928
  Serious: No
  Sender: FDA-Public Use
  Company Number: US-PFIZER INC-2012176455

PATIENT
  Sex: Female
  Weight: 63.492 kg

DRUGS (6)
  1. VITAMIN B-12 [Concomitant]
     Dosage: UNK
  2. LYRICA [Suspect]
     Indication: INSOMNIA
     Dosage: 150 MG (THREE 50MG CAPSULE AT NIGHT), UNK
     Route: 048
     Dates: start: 20110101
  3. LYRICA [Suspect]
     Indication: FIBROMYALGIA
  4. OMEPRAZOLE [Concomitant]
     Dosage: 20 MG, 1X/DAY
  5. IRON [Concomitant]
     Indication: IRON DEFICIENCY
     Dosage: UNK
  6. LYRICA [Suspect]
     Indication: PAIN

REACTIONS (1)
  - PAIN [None]
